FAERS Safety Report 4428049-3 (Version None)
Quarter: 2004Q3

REPORT INFORMATION
  Report Type: 
  Country: None (occurrence: None)
  Receive Date: 20040817
  Receipt Date: 20040624
  Transmission Date: 20050211
  Serious: Yes (Hospitalization)
  Sender: FDA-Public Use
  Company Number: US-MERCK-0406USA02339

PATIENT
  Age: 33 Year
  Sex: Male
  Weight: 93 kg

DRUGS (2)
  1. ALEVE [Concomitant]
     Route: 065
  2. VIOXX [Suspect]
     Indication: INFLAMMATION
     Route: 048
     Dates: start: 20040616, end: 20040619

REACTIONS (2)
  - ABDOMINAL DISCOMFORT [None]
  - RECTAL HAEMORRHAGE [None]
